FAERS Safety Report 5931905-8 (Version None)
Quarter: 2008Q4

REPORT INFORMATION
  Report Type: 
  Country: None (occurrence: None)
  Receive Date: 20081027
  Receipt Date: 20081017
  Transmission Date: 20090506
  Serious: Yes (Hospitalization)
  Sender: FDA-Public Use
  Company Number: JP-PFIZER INC-2008087678

PATIENT
  Sex: Female

DRUGS (3)
  1. CELECOX [Suspect]
     Indication: OSTEOARTHRITIS
     Dosage: DAILY DOSE:100MG
     Route: 048
     Dates: start: 20080801, end: 20080801
  2. OSTELUC [Concomitant]
     Dates: end: 20080801
  3. VITAMIN B COMPLEX CAP [Concomitant]
     Dates: end: 20080801

REACTIONS (3)
  - ARRHYTHMIA [None]
  - HYPERKALAEMIA [None]
  - RENAL IMPAIRMENT [None]
